FAERS Safety Report 11413397 (Version 2)
Quarter: 2015Q3

REPORT INFORMATION
  Report Type: Spontaneous
  Country: US (occurrence: US)
  Receive Date: 20150821
  Receipt Date: 20150903
  Transmission Date: 20151125
  Serious: No
  Sender: FDA-Public Use
  Company Number: US-ELI_LILLY_AND_COMPANY-US201210005492

PATIENT
  Sex: Female

DRUGS (3)
  1. HUMULIN N [Suspect]
     Active Substance: INSULIN HUMAN
     Indication: TYPE 2 DIABETES MELLITUS
     Dosage: 60 U, EACH EVENING
  2. HUMALOG [Suspect]
     Active Substance: INSULIN LISPRO
     Indication: TYPE 2 DIABETES MELLITUS
  3. HUMULIN N [Suspect]
     Active Substance: INSULIN HUMAN
     Dosage: 60 U, EACH EVENING

REACTIONS (5)
  - Eructation [Unknown]
  - Diarrhoea [Unknown]
  - Intentional product misuse [Unknown]
  - Drug dose omission [Unknown]
  - Flatulence [Unknown]

NARRATIVE: CASE EVENT DATE: 20121015
